FAERS Safety Report 11896552 (Version 3)
Quarter: 2016Q3

REPORT INFORMATION
  Report Type: Spontaneous
  Country: US (occurrence: US)
  Receive Date: 20160107
  Receipt Date: 20160815
  Transmission Date: 20161109
  Serious: Yes (Other)
  Sender: FDA-Public Use
  Company Number: US-CELGENEUS-USA-2016010403

PATIENT
  Sex: Female

DRUGS (1)
  1. REVLIMID [Suspect]
     Active Substance: LENALIDOMIDE
     Indication: B-CELL LYMPHOMA
     Dosage: 25 MILLIGRAM
     Route: 048
     Dates: start: 201512

REACTIONS (4)
  - Epistaxis [Not Recovered/Not Resolved]
  - Rash [Unknown]
  - Haematochezia [Not Recovered/Not Resolved]
  - Skin candida [Not Recovered/Not Resolved]
